FAERS Safety Report 15710574 (Version 10)
Quarter: 2022Q2

REPORT INFORMATION
  Report Type: Spontaneous
  Country: US (occurrence: US)
  Receive Date: 20181211
  Receipt Date: 20220602
  Transmission Date: 20220720
  Serious: Yes (Other)
  Sender: FDA-Public Use
  Company Number: US-PFIZER INC-2018482846

PATIENT
  Age: 76 Year
  Sex: Female
  Weight: 73.94 kg

DRUGS (5)
  1. ARTHROTEC [Suspect]
     Active Substance: DICLOFENAC SODIUM\MISOPROSTOL
     Indication: Osteoarthritis
     Dosage: 75 MG, 2X/DAY
     Route: 048
  2. ARTHROTEC [Suspect]
     Active Substance: DICLOFENAC SODIUM\MISOPROSTOL
     Indication: Arthritis
  3. ARTHROTEC [Suspect]
     Active Substance: DICLOFENAC SODIUM\MISOPROSTOL
     Indication: Spinal operation
  4. TYLENOL [Concomitant]
     Active Substance: ACETAMINOPHEN
     Dosage: UNK
  5. IBUPROFEN [Concomitant]
     Active Substance: IBUPROFEN
     Dosage: UNK

REACTIONS (5)
  - Spinal operation [Unknown]
  - Product dose omission issue [Unknown]
  - Product prescribing error [Unknown]
  - Pain [Unknown]
  - Fibromyalgia [Unknown]
